FAERS Safety Report 6849851-4 (Version None)
Quarter: 2010Q3

REPORT INFORMATION
  Report Type: 
  Country: None (occurrence: None)
  Receive Date: 20100716
  Receipt Date: 20071003
  Transmission Date: 20110219
  Serious: No
  Sender: FDA-Public Use
  Company Number: US-PFIZER INC-2007085053

PATIENT
  Sex: Female
  Weight: 56.8 kg

DRUGS (9)
  1. CHANTIX [Suspect]
     Indication: SMOKING CESSATION THERAPY
     Route: 048
     Dates: start: 20070812
  2. ZOLPIDEM [Interacting]
     Indication: SLEEP DISORDER
     Route: 048
     Dates: start: 20070828, end: 20070925
  3. ROZEREM [Interacting]
     Indication: SLEEP DISORDER
     Route: 048
     Dates: start: 20070925
  4. ATENOLOL [Concomitant]
  5. HYDROCHLOROTHIAZIDE [Concomitant]
  6. HYDROXYZINE [Concomitant]
     Dates: end: 20070902
  7. CLONIDINE [Concomitant]
  8. PROMETRIUM [Concomitant]
  9. CENESTIN [Concomitant]

REACTIONS (5)
  - CONSTIPATION [None]
  - DRUG INEFFECTIVE [None]
  - DRUG INTERACTION [None]
  - FLATULENCE [None]
  - INSOMNIA [None]
